FAERS Safety Report 16628469 (Version 6)
Quarter: 2020Q1

REPORT INFORMATION
  Report Type: Spontaneous
  Country: CA (occurrence: CA)
  Receive Date: 20190725
  Receipt Date: 20200313
  Transmission Date: 20200409
  Serious: Yes (Death, Hospitalization, Other)
  Sender: FDA-Public Use
  Company Number: CA-CELLTRION INC.-2017CA005191

PATIENT

DRUGS (37)
  1. INFLECTRA [Suspect]
     Active Substance: INFLIXIMAB-DYYB
     Dosage: 400 MG, EVERY 6 TO 8 WEEKS
     Route: 042
     Dates: start: 20171127, end: 20171127
  2. INFLECTRA [Suspect]
     Active Substance: INFLIXIMAB-DYYB
     Dosage: 400 MG, EVERY 6 TO 8 WEEKS
     Route: 042
     Dates: start: 20190307, end: 20190307
  3. ENTOCORT [Concomitant]
     Active Substance: BUDESONIDE
     Dosage: 3 MG, TWICE DAILY
     Route: 048
     Dates: start: 2014
  4. INFLECTRA [Suspect]
     Active Substance: INFLIXIMAB-DYYB
     Dosage: 400 MG, EVERY 6 TO 8 WEEKS
     Route: 042
     Dates: start: 20180122, end: 20180122
  5. INFLECTRA [Suspect]
     Active Substance: INFLIXIMAB-DYYB
     Dosage: 400 MG, EVERY 6 TO 8 WEEKS
     Route: 042
     Dates: start: 20180305, end: 20180305
  6. INFLECTRA [Suspect]
     Active Substance: INFLIXIMAB-DYYB
     Dosage: 400 MG, EVERY 6 TO 8 WEEKS
     Route: 042
     Dates: start: 20180424, end: 20180424
  7. INFLECTRA [Suspect]
     Active Substance: INFLIXIMAB-DYYB
     Dosage: 400 MG, EVERY 6 TO 8 WEEKS
     Route: 042
     Dates: start: 20181217, end: 20181217
  8. VITALUX [Concomitant]
     Active Substance: MINERALS\VITAMINS
     Dosage: UNK, ONCE DAILY
     Route: 048
  9. INFLECTRA [Suspect]
     Active Substance: INFLIXIMAB-DYYB
     Dosage: 400 MG, EVERY 6 TO 8 WEEKS
     Route: 042
     Dates: start: 20180305, end: 20180305
  10. INFLECTRA [Suspect]
     Active Substance: INFLIXIMAB-DYYB
     Dosage: 400 MG, EVERY 6 TO 8 WEEKS
     Route: 042
     Dates: start: 20180817, end: 20180817
  11. INFLECTRA [Suspect]
     Active Substance: INFLIXIMAB-DYYB
     Dosage: 400 MG, EVERY 6 TO 8 WEEKS
     Route: 042
     Dates: start: 20190416, end: 20190416
  12. INFLECTRA [Suspect]
     Active Substance: INFLIXIMAB-DYYB
     Dosage: 400 MG, EVERY 6 TO 8 WEEKS
     Route: 042
     Dates: start: 20190530, end: 20190530
  13. ZINC. [Concomitant]
     Active Substance: ZINC
     Dosage: 5 MG, ONCE DAILY
     Route: 048
  14. ACTONEL [Concomitant]
     Active Substance: RISEDRONATE SODIUM
     Dosage: 150 MG, MONTHLY
     Route: 048
  15. TRAVATAN [Concomitant]
     Active Substance: TRAVOPROST
     Dosage: 1 GTT, ONCE DAILY (1 DROP IN EACH EYE EVERY NIGHT)
  16. INFLECTRA [Suspect]
     Active Substance: INFLIXIMAB-DYYB
     Dosage: 300 MG, AT 0, 2, 6 WEEKS THEN EVERY 6 WEEKS
     Route: 042
     Dates: start: 20170327, end: 20170327
  17. INFLECTRA [Suspect]
     Active Substance: INFLIXIMAB-DYYB
     Dosage: 400 MG, EVERY 6 TO 8 WEEKS
     Route: 042
     Dates: start: 20170515, end: 20170515
  18. INFLECTRA [Suspect]
     Active Substance: INFLIXIMAB-DYYB
     Dosage: 400 MG, EVERY 6 TO 8 WEEKS
     Route: 042
     Dates: start: 20171016, end: 20171016
  19. INFLECTRA [Suspect]
     Active Substance: INFLIXIMAB-DYYB
     Dosage: 400 MG, EVERY 6 TO 8 WEEKS
     Route: 042
     Dates: start: 20190711, end: 20190711
  20. VITAMIN B12 [Concomitant]
     Active Substance: CYANOCOBALAMIN
     Dosage: 1200 UG, ONCE DAILY
     Route: 048
  21. CALCIUM [Concomitant]
     Active Substance: CALCIUM
     Dosage: 500 MG, ONCE DAILY
     Route: 048
  22. OLESTYR [Concomitant]
     Active Substance: CHOLESTYRAMINE
     Dosage: 3 DF, DAILY
     Dates: start: 2014
  23. BUDESONIDE. [Concomitant]
     Active Substance: BUDESONIDE
     Dosage: 3 MG, EVERY 2 WEEKS
  24. INFLECTRA [Suspect]
     Active Substance: INFLIXIMAB-DYYB
     Dosage: 400 MG, EVERY 6 TO 8 WEEKS
     Route: 042
     Dates: start: 20180928, end: 20180928
  25. INFLECTRA [Suspect]
     Active Substance: INFLIXIMAB-DYYB
     Dosage: 400 MG, EVERY 6 TO 8 WEEKS
     Route: 042
     Dates: start: 20190124, end: 20190124
  26. INFLECTRA [Suspect]
     Active Substance: INFLIXIMAB-DYYB
     Dosage: 400 MG, EVERY 6 TO 8 WEEKS
     Route: 042
     Dates: start: 20190822, end: 20190822
  27. INFLECTRA [Suspect]
     Active Substance: INFLIXIMAB-DYYB
     Dosage: 400 MG, EVERY 6 TO 8 WEEKS
     Route: 042
     Dates: start: 20191114
  28. FERROUS GLUCONATE [Concomitant]
     Active Substance: FERROUS GLUCONATE
     Dosage: 300 MG, ONCE DAILY
     Route: 048
     Dates: start: 1984
  29. INFLECTRA [Suspect]
     Active Substance: INFLIXIMAB-DYYB
     Dosage: 400 MG, EVERY 6 TO 8 WEEKS
     Route: 042
     Dates: start: 20170726, end: 20170726
  30. INFLECTRA [Suspect]
     Active Substance: INFLIXIMAB-DYYB
     Dosage: 400 MG, EVERY 6 TO 8 WEEKS
     Route: 042
     Dates: start: 20180604, end: 20180604
  31. INFLECTRA [Suspect]
     Active Substance: INFLIXIMAB-DYYB
     Dosage: 400 MG, EVERY 6 TO 8 WEEKS
     Route: 042
     Dates: start: 20180817, end: 20180817
  32. INFLECTRA [Suspect]
     Active Substance: INFLIXIMAB-DYYB
     Dosage: 400 MG, EVERY 6 TO 8 WEEKS
     Route: 042
     Dates: start: 20190530, end: 20190530
  33. POLYSPORINA [Concomitant]
     Dosage: UNK
     Dates: start: 20170625
  34. MULTI VIT [Concomitant]
     Active Substance: VITAMINS
     Dosage: UNK, ONCE DAILY
     Route: 048
  35. INFLECTRA [Suspect]
     Active Substance: INFLIXIMAB-DYYB
     Indication: ANKYLOSING SPONDYLITIS
     Dosage: 300 MG, AT 0, 2, 6 WEEKS THEN EVERY 6 WEEKS
     Route: 042
     Dates: start: 20161028, end: 20161028
  36. INFLECTRA [Suspect]
     Active Substance: INFLIXIMAB-DYYB
     Dosage: 400 MG, EVERY 6 TO 8 WEEKS
     Route: 042
     Dates: start: 20191003, end: 20191003
  37. MELOXICAM. [Concomitant]
     Active Substance: MELOXICAM
     Dosage: UNK

REACTIONS (12)
  - Condition aggravated [Recovering/Resolving]
  - Death [Fatal]
  - Off label use [Unknown]
  - Back pain [Unknown]
  - Product use issue [Unknown]
  - Colitis ulcerative [Unknown]
  - Food poisoning [Unknown]
  - Inappropriate schedule of product administration [Unknown]
  - Gait disturbance [Unknown]
  - Dehydration [Unknown]
  - Blood pressure fluctuation [Unknown]
  - Localised infection [Unknown]

NARRATIVE: CASE EVENT DATE: 2017
